FAERS Safety Report 10284930 (Version 1)
Quarter: 2014Q3

REPORT INFORMATION
  Report Type: Spontaneous
  Country: US (occurrence: US)
  Receive Date: 20140708
  Receipt Date: 20140708
  Transmission Date: 20150326
  Serious: Yes (Other)
  Sender: FDA-Public Use
  Company Number: US-VIIV HEALTHCARE LIMITED-A1079674A

PATIENT
  Age: 58 Year
  Sex: Male

DRUGS (7)
  1. LAMIVUDINE-HIV [Suspect]
     Active Substance: LAMIVUDINE
     Indication: HIV INFECTION
  2. PRAVASTATIN [Concomitant]
     Active Substance: PRAVASTATIN\PRAVASTATIN SODIUM
  3. VITAMIN D [Concomitant]
     Active Substance: CHOLECALCIFEROL
  4. VITAMIN C [Concomitant]
     Active Substance: ASCORBIC ACID
  5. DIETARY SUPPLEMENT [Concomitant]
     Active Substance: DIETARY SUPPLEMENT
  6. FOLIC ACID. [Concomitant]
     Active Substance: FOLIC ACID
  7. TIVICAY [Suspect]
     Active Substance: DOLUTEGRAVIR SODIUM
     Indication: HIV INFECTION
     Dosage: 50MG PER DAY
     Route: 048
     Dates: start: 201401, end: 20140612

REACTIONS (14)
  - Disturbance in attention [Unknown]
  - Weight increased [Recovering/Resolving]
  - Blood creatine phosphokinase increased [Unknown]
  - Suicidal ideation [Unknown]
  - Drug ineffective [Unknown]
  - Insomnia [Unknown]
  - Inflammation [Unknown]
  - Lipodystrophy acquired [Unknown]
  - Contusion [Unknown]
  - Headache [Unknown]
  - Nail discolouration [Unknown]
  - Anxiety [Unknown]
  - Depressed mood [Unknown]
  - Low density lipoprotein increased [Unknown]
